FAERS Safety Report 5656264-X (Version None)
Quarter: 2008Q1

REPORT INFORMATION
  Report Type: 
  Country: None (occurrence: None)
  Receive Date: 20080305
  Receipt Date: 20080214
  Transmission Date: 20080703
  Serious: Yes (Hospitalization)
  Sender: FDA-Public Use
  Company Number: PAR_02129_2008

PATIENT
  Sex: Male

DRUGS (20)
  1. IBUPROFEN (IBUPROFEN) [Suspect]
     Indication: PAIN
     Dosage: (1200 MG ORAL)
     Route: 048
     Dates: start: 20040920, end: 20040922
  2. AUGMENTIN [Suspect]
     Indication: INFECTION PROPHYLAXIS
     Dosage: (6.6 G INTRAVENOUS))
     Route: 042
     Dates: start: 20040919, end: 20040920
  3. NOVALGIN /00039501/ (NOVALGIN - METAMIZOLE SODIUM) (NOT SPECIFIED) [Suspect]
     Indication: PAIN
     Dosage: (DF ORAL)
     Route: 048
     Dates: start: 20040920, end: 20040923
  4. BAYOTENSIN (BAYOTENSIN - NITRENDIPINE) [Suspect]
     Indication: HYPERTENSION
     Dosage: (2 DF ORAL)
     Route: 048
     Dates: start: 20040919, end: 20040924
  5. LOPIRIN /00498401/ (LOPIRIN-HCT- CAPTOPRIL) (NOT SPECIFIED) [Suspect]
     Indication: HYPERTENSION
     Dosage: (DF ORAL)
     Route: 048
     Dates: start: 20040919
  6. MONO-EMBOLEX /00889602/ (MONO EMBOLEX - HEPARIN-FRACTION, SODIUM SALT) [Suspect]
     Indication: THROMBOSIS PROPHYLAXIS
     Dosage: (3000 IU SUBCUTANEOUS
     Route: 058
     Dates: start: 20040919, end: 20040923
  7. OXYGESIC (OXYGESIC - OXYCODONE HYDROCHLORIDE) (NOT SPECIFIED) [Suspect]
     Indication: PAIN
     Dosage: (20 MG ORAL)
     Route: 048
     Dates: start: 20040919, end: 20040922
  8. REMERGIL (REMERGIL - MIRTAZAPINE) (NOT SPECIFIED) [Suspect]
     Indication: DEPRESSION
     Dosage: (30 MG ORAL)
     Route: 048
     Dates: start: 20040922
  9. ANTRA /00661201/ [Concomitant]
  10. LORAZEPAM [Concomitant]
  11. PRAXITEN [Concomitant]
  12. ASPIRIN [Concomitant]
  13. ULTRALAN-ORAL [Concomitant]
  14. DOCITON [Concomitant]
  15. METHOTREXATE [Concomitant]
  16. ULCOGANT /00434701/ [Concomitant]
  17. VITAMIN C /00008001/ [Concomitant]
  18. CIPROBAY /00697201/ [Concomitant]
  19. LACTULOSE [Concomitant]
  20. RIOPAN /00141701/ [Concomitant]

REACTIONS (4)
  - DISEASE PROGRESSION [None]
  - OVERDOSE [None]
  - POLYARTHRITIS [None]
  - STEVENS-JOHNSON SYNDROME [None]
